FAERS Safety Report 5509961-0 (Version None)
Quarter: 2007Q4

REPORT INFORMATION
  Report Type: 
  Country: None (occurrence: None)
  Receive Date: 20071107
  Receipt Date: 20071107
  Transmission Date: 20080405
  Serious: Yes (Other)
  Sender: FDA-Public Use
  Company Number: None

PATIENT
  Age: 65 Year
  Sex: Female
  Weight: 90.7194 kg

DRUGS (8)
  1. DULOXETINE 20MG LILLY [Suspect]
     Indication: MAJOR DEPRESSION
     Dosage: 10-60MG DAILY PO
     Route: 048
  2. DULOXETINE 20MG LILLY [Suspect]
     Indication: PAIN
     Dosage: 10-60MG DAILY PO
     Route: 048
  3. LISINOPRIL [Concomitant]
  4. AMLODIPINE [Concomitant]
  5. HYDROCHLOROTHIAZIDE [Concomitant]
  6. PROPRANOLOL [Concomitant]
  7. METOPROLOL TARTRATE [Concomitant]
  8. HYDRALAZINE HCL [Concomitant]

REACTIONS (8)
  - DECREASED ACTIVITY [None]
  - DISTURBANCE IN ATTENTION [None]
  - DYSPNOEA EXERTIONAL [None]
  - HYPERTENSION [None]
  - IMPAIRED WORK ABILITY [None]
  - MALAISE [None]
  - TACHYCARDIA [None]
  - WHEEZING [None]
